FAERS Safety Report 11891074 (Version 2)
Quarter: 2016Q1

REPORT INFORMATION
  Report Type: Spontaneous
  Country: US (occurrence: US)
  Receive Date: 20160106
  Receipt Date: 20160115
  Transmission Date: 20160526
  Serious: Yes (Other)
  Sender: FDA-Public Use
  Company Number: US-ROCHE-1652568

PATIENT
  Sex: Male
  Weight: 106.24 kg

DRUGS (1)
  1. ESBRIET [Suspect]
     Active Substance: PIRFENIDONE
     Indication: IDIOPATHIC PULMONARY FIBROSIS
     Dosage: 801MG DAILY
     Route: 048
     Dates: start: 20150910

REACTIONS (4)
  - Medication error [Unknown]
  - Staphylococcal infection [Unknown]
  - Nasopharyngitis [Unknown]
  - Cough [Unknown]
